FAERS Safety Report 12906082 (Version 1)
Quarter: 2016Q4

REPORT INFORMATION
  Report Type: Spontaneous
  Country: US (occurrence: US)
  Receive Date: 20161102
  Receipt Date: 20161102
  Transmission Date: 20170207
  Serious: No
  Sender: FDA-Public Use
  Company Number: None

PATIENT
  Age: 82 Year
  Sex: Female
  Weight: 55.39 kg

DRUGS (1)
  1. HYOSCYAMINE. [Suspect]
     Active Substance: HYOSCYAMINE
     Route: 060
     Dates: start: 20160615

REACTIONS (3)
  - Fear [None]
  - Dry mouth [None]
  - Urine output decreased [None]

NARRATIVE: CASE EVENT DATE: 2016
